FAERS Safety Report 13031230 (Version 3)
Quarter: 2019Q2

REPORT INFORMATION
  Report Type: Report from Study
  Country: DK (occurrence: DK)
  Receive Date: 20161215
  Receipt Date: 20190530
  Transmission Date: 20190711
  Serious: Yes (Life-Threatening, Hospitalization, Disabling, Congenital Anomaly, Other)
  Sender: FDA-Public Use
  Company Number: DK-SA-2016SA220854

PATIENT
  Age: 10 Month
  Sex: Male
  Weight: 3.21 kg

DRUGS (6)
  1. INSULIN GLARGINE [Suspect]
     Active Substance: INSULIN GLARGINE
     Indication: TYPE 1 DIABETES MELLITUS
     Dosage: 40 IU, QD
     Route: 064
     Dates: start: 20150129, end: 20151008
  2. FOLIC ACID. [Concomitant]
     Active Substance: FOLIC ACID
     Dosage: UNK UNK,UNK
     Dates: start: 20150423, end: 20151008
  3. INSULIN GLARGINE [Suspect]
     Active Substance: INSULIN GLARGINE
     Dosage: 40 UNK
     Route: 063
     Dates: start: 20151008, end: 20151119
  4. NOVORAPID [Suspect]
     Active Substance: INSULIN ASPART
     Dosage: 9 IU,QD
     Route: 064
     Dates: start: 20150129, end: 20151008
  5. NOVORAPID [Suspect]
     Active Substance: INSULIN ASPART
     Indication: TYPE 1 DIABETES MELLITUS
     Dosage: 9 IU,QD
     Route: 063
     Dates: start: 20151008, end: 20151119
  6. IMADRAX [Concomitant]
     Active Substance: AMOXICILLIN
     Dosage: UNK UNK,UNK
     Dates: start: 20150813, end: 20150820

REACTIONS (18)
  - Premature baby [Recovered/Resolved]
  - Multiple congenital abnormalities [Unknown]
  - Ventricular septal defect [Recovered/Resolved]
  - Pneumonia [Recovered/Resolved]
  - Neonatal respiratory distress syndrome [Recovering/Resolving]
  - Sepsis neonatal [Recovered/Resolved]
  - Hypospadias [Not Recovered/Not Resolved]
  - Cystostomy [Recovered/Resolved]
  - Congenital bladder anomaly [Not Recovered/Not Resolved]
  - Renal aplasia [Not Recovered/Not Resolved]
  - Intestinal prolapse [Recovered/Resolved]
  - Nephrectomy [Recovered/Resolved]
  - Foetal exposure during pregnancy [Unknown]
  - Respiratory tract infection [Recovered/Resolved]
  - Exposure via breast milk [Unknown]
  - Congenital intestinal malformation [Not Recovered/Not Resolved]
  - Pneumothorax [Recovered/Resolved]
  - Constipation [Recovered/Resolved]

NARRATIVE: CASE EVENT DATE: 20150129
